FAERS Safety Report 7265799-8 (Version None)
Quarter: 2011Q1

REPORT INFORMATION
  Report Type: 
  Country: None (occurrence: None)
  Receive Date: 20110131
  Receipt Date: 20110124
  Transmission Date: 20110831
  Serious: Yes (Congenital Anomaly)
  Sender: FDA-Public Use
  Company Number: A0687258A

PATIENT
  Sex: Male
  Weight: 1.5 kg

DRUGS (5)
  1. PAXIL CR [Suspect]
     Indication: STRESS
     Dosage: 12.5MG PER DAY
     Route: 064
     Dates: start: 20020701
  2. TUMS [Concomitant]
     Route: 064
  3. PAXIL [Suspect]
     Route: 064
  4. PRENATAL VITAMINS [Concomitant]
     Route: 064
  5. TYLENOL-500 [Concomitant]
     Route: 064

REACTIONS (3)
  - CONGENITAL AORTIC STENOSIS [None]
  - DRUG EXPOSURE DURING PREGNANCY [None]
  - BICUSPID AORTIC VALVE [None]
